FAERS Safety Report 16257330 (Version 1)
Quarter: 2019Q2

REPORT INFORMATION
  Report Type: Spontaneous
  Country: US (occurrence: US)
  Receive Date: 20190430
  Receipt Date: 20190430
  Transmission Date: 20190711
  Serious: No
  Sender: FDA-Public Use
  Company Number: US-PFIZER INC-2019055858

PATIENT
  Age: 58 Year
  Sex: Male
  Weight: 95.25 kg

DRUGS (1)
  1. VIAGRA [Suspect]
     Active Substance: SILDENAFIL CITRATE
     Indication: ERECTILE DYSFUNCTION
     Dosage: 100 MG, AS NEEDED (1 HOUR BEFORE SEXUAL ACTIVITY AS NEEDED)
     Route: 048

REACTIONS (4)
  - Product use issue [Unknown]
  - Weight decreased [Unknown]
  - Painful erection [Recovered/Resolved]
  - Erection increased [Recovered/Resolved]
